FAERS Safety Report 19166761 (Version 4)
Quarter: 2021Q2

REPORT INFORMATION
  Report Type: Report from Study
  Country: JP (occurrence: JP)
  Receive Date: 20210421
  Receipt Date: 20210615
  Transmission Date: 20210717
  Serious: Yes (Hospitalization, Other)
  Sender: FDA-Public Use
  Company Number: JP-ROCHE-2811967

PATIENT
  Age: 58 Year
  Sex: Male
  Weight: 60.9 kg

DRUGS (23)
  1. BEVACIZUMAB. [Suspect]
     Active Substance: BEVACIZUMAB
     Indication: RECTAL CANCER
     Route: 041
     Dates: start: 20210329, end: 20210329
  2. CAPECITABINE. [Suspect]
     Active Substance: CAPECITABINE
     Route: 048
     Dates: start: 20210507
  3. OXALIPLATIN. [Suspect]
     Active Substance: OXALIPLATIN
     Route: 041
     Dates: start: 20210507
  4. IRINOTECAN HYDROCHLORIDE HYDRATE [Suspect]
     Active Substance: IRINOTECAN HYDROCHLORIDE
     Route: 041
     Dates: start: 20210507
  5. NARUSUS [Concomitant]
     Active Substance: HYDROMORPHONE HYDROCHLORIDE
     Indication: CANCER PAIN
     Dosage: 2MG,ONCE IN1DAY
     Route: 048
     Dates: start: 20210315, end: 20210409
  6. APREPITANT. [Concomitant]
     Active Substance: APREPITANT
     Dosage: 125 MILLIGRAM, QD
     Route: 048
     Dates: start: 20210329, end: 20210329
  7. LOPERAMIDE HYDROCHLORIDE. [Concomitant]
     Active Substance: LOPERAMIDE HYDROCHLORIDE
  8. OXALIPLATIN. [Suspect]
     Active Substance: OXALIPLATIN
     Indication: RECTAL CANCER
     Route: 041
     Dates: start: 20210329, end: 20210329
  9. DEXAMETHASONE SODIUM PHOSPHATE. [Concomitant]
     Active Substance: DEXAMETHASONE SODIUM PHOSPHATE
     Dosage: 9.9 MILLIGRAM, QD
     Route: 041
     Dates: start: 20210329, end: 20210329
  10. APREPITANT. [Concomitant]
     Active Substance: APREPITANT
     Dosage: 80 UNK
     Route: 048
     Dates: start: 20210330, end: 20210331
  11. APREPITANT. [Concomitant]
     Active Substance: APREPITANT
     Dosage: 80 MILLIGRAM, ONCE/3WEEKS
     Route: 048
     Dates: start: 20210508
  12. PALONOSETRON HYDROCHLORIDE. [Concomitant]
     Active Substance: PALONOSETRON HYDROCHLORIDE
     Dosage: 0.75 MILLIGRAM, ONCE/3WEEKS
     Route: 041
     Dates: start: 20210507
  13. DEXAMETHASONE. [Concomitant]
     Active Substance: DEXAMETHASONE
     Dosage: 8 MILLIGRAM, ONCE/3WEEKS
     Route: 048
     Dates: start: 20210508
  14. APREPITANT. [Concomitant]
     Active Substance: APREPITANT
     Dosage: 125 MILLIGRAM, ONCE/3WEEKS
     Route: 048
     Dates: start: 20210507
  15. BEVACIZUMAB. [Suspect]
     Active Substance: BEVACIZUMAB
     Route: 041
     Dates: start: 20210507
  16. CAPECITABINE. [Suspect]
     Active Substance: CAPECITABINE
     Indication: RECTAL CANCER
     Route: 048
     Dates: start: 20210329, end: 20210404
  17. ADONA (JAPAN) [Concomitant]
     Indication: HAEMORRHAGE PROPHYLAXIS
     Dosage: 90MG,ONCE IN1DAY
     Route: 048
     Dates: start: 20210404
  18. SYMPROIC [Concomitant]
     Active Substance: NALDEMEDINE
     Indication: HAEMORRHAGE PROPHYLAXIS
     Dosage: 0.2MG,ONCE IN1DAY
     Route: 048
     Dates: start: 20210315, end: 20210406
  19. DEXAMETHASONE SODIUM PHOSPHATE. [Concomitant]
     Active Substance: DEXAMETHASONE SODIUM PHOSPHATE
     Dosage: 9.9 MILLIGRAM, ONCE/3WEEKS
     Route: 041
     Dates: start: 20210507
  20. DEXAMETHASONE. [Concomitant]
     Active Substance: DEXAMETHASONE
     Dosage: 8 MILLIGRAM
     Route: 048
     Dates: start: 20210330, end: 20210401
  21. IRINOTECAN HYDROCHLORIDE HYDRATE [Suspect]
     Active Substance: IRINOTECAN HYDROCHLORIDE
     Indication: RECTAL CANCER
     Route: 041
     Dates: start: 20210329, end: 20210329
  22. MAGMITT [Concomitant]
     Active Substance: MAGNESIUM OXIDE
     Indication: HAEMORRHAGE PROPHYLAXIS
     Dosage: 660MG,ONCE IN1DAY
     Route: 048
     Dates: start: 20210129, end: 202104
  23. PALONOSETRON HYDROCHLORIDE. [Concomitant]
     Active Substance: PALONOSETRON HYDROCHLORIDE
     Dosage: 0.75 MILLIGRAM, QD
     Route: 041
     Dates: start: 20210329, end: 20210329

REACTIONS (4)
  - Decreased appetite [Unknown]
  - Febrile neutropenia [Unknown]
  - Neutrophil count decreased [Unknown]
  - Enterocolitis [Recovered/Resolved]

NARRATIVE: CASE EVENT DATE: 20210329
